FAERS Safety Report 15373410 (Version 3)
Quarter: 2022Q2

REPORT INFORMATION
  Report Type: Report from Study
  Country: US (occurrence: None)
  Receive Date: 20180912
  Receipt Date: 20220526
  Transmission Date: 20220721
  Serious: Yes (Death, Hospitalization)
  Sender: FDA-Public Use
  Company Number: US-ROCHE-2181881

PATIENT
  Age: 60 Year
  Sex: Male
  Weight: 82.4 kg

DRUGS (19)
  1. VENETOCLAX [Suspect]
     Active Substance: VENETOCLAX
     Indication: Mantle cell lymphoma
     Dosage: THE INITIAL CYCLE 1 VEN (VENETOCLAX) DOSE RAMP-UP WILL BE: 20 MG DAILY FOR 1 WEEK, 50 MG DAILY FOR W
     Route: 048
     Dates: start: 20180612
  2. IBRUTINIB [Suspect]
     Active Substance: IBRUTINIB
     Indication: Mantle cell lymphoma
     Dosage: ON 26/AUG/2018, HE RECEIVED THE MOST RECENT DOSE OF IBRUTINIB PRIOR TO EVENT ONSET.
     Route: 048
     Dates: start: 20180612
  3. SENNA PLUS [Concomitant]
     Active Substance: DOCUSATE SODIUM\SENNOSIDES\SENNOSIDES A AND B
  4. ACYCLOVIR [Concomitant]
     Active Substance: ACYCLOVIR
  5. ATOVAQUONE [Concomitant]
     Active Substance: ATOVAQUONE
  6. ATOVAQUONE [Concomitant]
     Active Substance: ATOVAQUONE
     Route: 048
  7. PANTOPRAZOLE [Concomitant]
     Active Substance: PANTOPRAZOLE
  8. ZOSYN [Concomitant]
     Active Substance: PIPERACILLIN SODIUM\TAZOBACTAM SODIUM
  9. METHYLPREDNISOLONE [Concomitant]
     Active Substance: METHYLPREDNISOLONE
     Dates: start: 20180902
  10. ALLOPURINOL [Concomitant]
     Active Substance: ALLOPURINOL
     Route: 048
  11. IPRATROPIUM BROMIDE [Concomitant]
     Active Substance: IPRATROPIUM BROMIDE
     Dosage: INHALATION SOLUTION, NEBULIZER
  12. LEVALBUTEROL [Concomitant]
     Active Substance: LEVALBUTEROL
     Dosage: INHALATION SOLUTION, NEBULIZER
  13. LIDOCAINE [Concomitant]
     Active Substance: LIDOCAINE
     Route: 058
  14. ISAVUCONAZONIUM SULFATE [Concomitant]
     Active Substance: ISAVUCONAZONIUM SULFATE
     Route: 048
  15. VITAMIN B1 [Concomitant]
     Active Substance: THIAMINE HYDROCHLORIDE
     Route: 048
  16. ACETAMINOPHEN [Concomitant]
     Active Substance: ACETAMINOPHEN
     Route: 048
  17. DIPHENHYDRAMINE [Concomitant]
     Active Substance: DIPHENHYDRAMINE
     Route: 048
  18. OXYCODONE [Concomitant]
     Active Substance: OXYCODONE
     Route: 048
  19. HYDROMORPHONE [Concomitant]
     Active Substance: HYDROMORPHONE
     Route: 042

REACTIONS (11)
  - Death [Fatal]
  - Abdominal pain lower [Unknown]
  - Febrile neutropenia [Unknown]
  - Sepsis [Fatal]
  - Cardiac failure [Unknown]
  - Acute kidney injury [Unknown]
  - Splenic infarction [Recovered/Resolved]
  - Thrombocytopenia [Unknown]
  - Hypoglycaemia [Unknown]
  - Hypotension [Unknown]
  - Tachycardia [Unknown]

NARRATIVE: CASE EVENT DATE: 20180902
